FAERS Safety Report 7430175-1 (Version None)
Quarter: 2011Q2

REPORT INFORMATION
  Report Type: 
  Country: None (occurrence: None)
  Receive Date: 20110421
  Receipt Date: 20100726
  Transmission Date: 20111010
  Serious: No
  Sender: FDA-Public Use
  Company Number: US-ASTRAZENECA-2010SE19418

PATIENT
  Age: 74 Year
  Sex: Female
  Weight: 71.2 kg

DRUGS (2)
  1. KLONOPIN [Concomitant]
  2. TOPROL-XL [Suspect]
     Indication: HYPERTENSION
     Route: 048

REACTIONS (3)
  - PAIN [None]
  - ALOPECIA [None]
  - MUSCLE SPASMS [None]
